FAERS Safety Report 5491074-8 (Version None)
Quarter: 2007Q4

REPORT INFORMATION
  Report Type: 
  Country: None (occurrence: None)
  Receive Date: 20071019
  Receipt Date: 20070730
  Transmission Date: 20080405
  Serious: Yes (Hospitalization)
  Sender: FDA-Public Use
  Company Number: US-SANOFI-SYNTHELABO-A03200704337

PATIENT
  Sex: Male
  Weight: 88.5 kg

DRUGS (18)
  1. PLAVIX [Suspect]
     Indication: STENT PLACEMENT
     Route: 048
     Dates: start: 20060101
  2. ASPIRIN [Suspect]
     Indication: DEEP VEIN THROMBOSIS
     Route: 048
  3. COUMADIN [Suspect]
     Indication: DEEP VEIN THROMBOSIS
     Dosage: UNK
     Route: 048
     Dates: start: 20050801, end: 20070201
  4. LOVENOX [Suspect]
     Indication: DEEP VEIN THROMBOSIS
     Route: 058
     Dates: start: 20070207, end: 20070322
  5. LOVENOX [Suspect]
     Route: 058
     Dates: start: 20070322
  6. RISPERDAL [Concomitant]
     Indication: DEPRESSION
     Route: 048
     Dates: start: 20050101
  7. RISPERDAL [Concomitant]
     Indication: ANXIETY
     Route: 048
     Dates: start: 20050101
  8. TOPROL-XL [Concomitant]
     Indication: HYPERTENSION
     Route: 048
     Dates: start: 20060101
  9. TOPAMAX [Concomitant]
     Indication: MIGRAINE
     Route: 048
     Dates: start: 20010101
  10. SINGULAIR [Concomitant]
     Route: 048
     Dates: start: 20030101
  11. ADVAIR DISKUS 100/50 [Concomitant]
     Indication: CHRONIC OBSTRUCTIVE PULMONARY DISEASE
     Dosage: 100/50 BID PRN
     Route: 048
     Dates: start: 20030101
  12. ZETIA [Concomitant]
     Indication: DYSLIPIDAEMIA
     Route: 048
  13. LIPITOR [Concomitant]
     Indication: DYSLIPIDAEMIA
     Route: 048
  14. ALLEGRA [Concomitant]
     Indication: SEASONAL ALLERGY
     Route: 048
     Dates: start: 20000101
  15. PROZAC [Concomitant]
     Indication: DEPRESSION
     Route: 048
     Dates: end: 20070601
  16. LEXAPRO [Concomitant]
     Indication: DEPRESSION
     Route: 048
     Dates: start: 20070601
  17. PROVIGIL [Concomitant]
     Route: 065
     Dates: start: 20060101
  18. PATANOL [Concomitant]
     Indication: HYPERSENSITIVITY
     Route: 031
     Dates: start: 20010101

REACTIONS (5)
  - ALOPECIA [None]
  - DEEP VEIN THROMBOSIS [None]
  - HAEMORRHAGE [None]
  - INJECTION SITE BRUISING [None]
  - INJECTION SITE HAEMORRHAGE [None]
